FAERS Safety Report 5395090-6 (Version None)
Quarter: 2007Q3

REPORT INFORMATION
  Report Type: 
  Country: None (occurrence: None)
  Receive Date: 20070724
  Receipt Date: 20070711
  Transmission Date: 20080115
  Serious: Yes (Other)
  Sender: FDA-Public Use
  Company Number: ES-NOVOPROD-265570

PATIENT

DRUGS (1)
  1. NOVOSEVEN [Suspect]
     Indication: HAEMOPHILIA

REACTIONS (1)
  - VASCULAR PSEUDOANEURYSM [None]
